FAERS Safety Report 5147665-7 (Version None)
Quarter: 2006Q4

REPORT INFORMATION
  Report Type: 
  Country: None (occurrence: None)
  Receive Date: 20061110
  Receipt Date: 20061025
  Transmission Date: 20070319
  Serious: Yes (Life-Threatening, Hospitalization)
  Sender: FDA-Public Use
  Company Number: 2006SE05765

PATIENT
  Age: 835 Month
  Sex: Male

DRUGS (6)
  1. BLOPRESS TABLETS 4 [Suspect]
     Indication: HYPERTENSION
     Route: 048
     Dates: start: 20031202, end: 20060815
  2. ALLOPURINOL [Concomitant]
     Indication: HYPERURICAEMIA
     Route: 048
     Dates: start: 20050607, end: 20060815
  3. MUCOSTA [Concomitant]
     Indication: STOMACH DISCOMFORT
     Route: 048
     Dates: start: 20040604, end: 20040614
  4. KYORIN AP 2 [Concomitant]
     Indication: GINGIVITIS
     Route: 048
     Dates: start: 20040313, end: 20040411
  5. MEILAX [Concomitant]
     Indication: NEUROSIS
     Route: 048
     Dates: start: 20040220, end: 20040331
  6. VITAMEDIN CAPSULE [Concomitant]
     Indication: ANAEMIA MACROCYTIC
     Route: 048
     Dates: start: 20040213, end: 20040223

REACTIONS (5)
  - BLOOD GLUCOSE INCREASED [None]
  - BLOOD URIC ACID INCREASED [None]
  - CARCINOEMBRYONIC ANTIGEN INCREASED [None]
  - DEPRESSED LEVEL OF CONSCIOUSNESS [None]
  - HYPOGLYCAEMIA [None]
